FAERS Safety Report 10282449 (Version 1)
Quarter: 2014Q3

REPORT INFORMATION
  Report Type: Spontaneous
  Country: KZ (occurrence: KZ)
  Receive Date: 20140707
  Receipt Date: 20140707
  Transmission Date: 20150326
  Serious: Yes (Other)
  Sender: FDA-Public Use
  Company Number: ALCN2014KZ003780

PATIENT
  Age: 39 Year
  Sex: Female

DRUGS (1)
  1. MYDRIACYL [Suspect]
     Active Substance: TROPICAMIDE
     Indication: OPHTHALMOLOGICAL EXAMINATION
     Dosage: 2 GTT, ONCE/SINGLE
     Route: 047
     Dates: start: 20140625

REACTIONS (3)
  - Breath sounds [Recovered/Resolved]
  - Nausea [Recovered/Resolved]
  - Vomiting [Recovered/Resolved]

NARRATIVE: CASE EVENT DATE: 20140625
